FAERS Safety Report 5130176-2 (Version None)
Quarter: 2006Q4

REPORT INFORMATION
  Report Type: 
  Country: None (occurrence: None)
  Receive Date: 20061013
  Receipt Date: 20060929
  Transmission Date: 20070319
  Serious: Yes (Other)
  Sender: FDA-Public Use
  Company Number: 06-000609

PATIENT
  Age: 57 Year
  Sex: Female
  Weight: 59 kg

DRUGS (2)
  1. FEMRING [Suspect]
     Indication: MENOPAUSAL SYMPTOMS
     Dosage: 0.05 MG, QD, VAGINAL
     Route: 067
     Dates: start: 20060301, end: 20060701
  2. WELLBUTRIN [Concomitant]

REACTIONS (4)
  - BREAST TENDERNESS [None]
  - HYDROMETRA [None]
  - METRORRHAGIA [None]
  - OVARIAN CYST [None]
